FAERS Safety Report 6810368-4 (Version None)
Quarter: 2010Q2

REPORT INFORMATION
  Report Type: 
  Country: None (occurrence: None)
  Receive Date: 20100630
  Receipt Date: 20100615
  Transmission Date: 20101027
  Serious: Yes (Hospitalization, Disabling)
  Sender: FDA-Public Use
  Company Number: PHHY2010JP39570

PATIENT
  Sex: Female
  Weight: 57 kg

DRUGS (11)
  1. DIOVAN [Suspect]
     Dosage: 120 MG, UNK
     Route: 048
     Dates: start: 20071024, end: 20071107
  2. DIOVAN [Suspect]
     Dosage: 160 MG, UNK
     Route: 048
     Dates: start: 20071108, end: 20090708
  3. DICHLOTRIDE [Suspect]
     Indication: HYPERTENSION
     Dosage: 12.5 MG, UNK
     Route: 048
     Dates: start: 20071116, end: 20090708
  4. ATELEC [Suspect]
     Indication: HYPERTENSION
     Dosage: 10 MG, UNK
     Route: 048
     Dates: start: 20080409, end: 20090708
  5. MYSLEE [Suspect]
     Dosage: 5 MG, UNK
     Route: 048
     Dates: start: 20051101, end: 20090708
  6. MYSLEE [Suspect]
     Dosage: 5 MG, UNK
     Route: 048
     Dates: start: 20051101, end: 20090708
  7. PAXIL [Suspect]
     Dosage: 10 MG, UNK
     Route: 048
     Dates: start: 20060725, end: 20090708
  8. DEPAS [Concomitant]
     Dosage: 0.5 MG, UNK
     Route: 048
     Dates: start: 20071218, end: 20090708
  9. CARNACULIN [Concomitant]
     Dosage: 100 MG, UNK
     Route: 048
     Dates: start: 20040210, end: 20090708
  10. ALINAMIN F [Concomitant]
     Dosage: 50 MG, UNK
     Route: 048
     Dates: start: 20060620, end: 20090708
  11. ASPIRIN [Concomitant]
     Dosage: 100 MG, UNK
     Route: 048
     Dates: start: 20050906, end: 20090708

REACTIONS (1)
  - CEREBRAL INFARCTION [None]
